FAERS Safety Report 5767555-6 (Version None)
Quarter: 2008Q2

REPORT INFORMATION
  Report Type: 
  Country: None (occurrence: None)
  Receive Date: 20080612
  Receipt Date: 20080603
  Transmission Date: 20081010
  Serious: Yes (Hospitalization, Other)
  Sender: FDA-Public Use
  Company Number: JP-PFIZER INC-2008038827

PATIENT
  Age: 80 Year
  Sex: Female

DRUGS (13)
  1. ZYVOX [Suspect]
     Indication: STAPHYLOCOCCAL INFECTION
     Route: 048
     Dates: start: 20080425, end: 20080512
  2. HABEKACIN [Concomitant]
     Route: 042
  3. VANCOMYCIN [Concomitant]
  4. MUCOSTA [Concomitant]
     Route: 048
  5. NU LOTAN [Concomitant]
     Route: 048
  6. LASIX [Concomitant]
     Route: 048
  7. FAMOTIDINE [Concomitant]
     Route: 048
  8. ALSIODOL [Concomitant]
     Route: 048
  9. MOBIC [Concomitant]
     Route: 048
  10. MERISLON [Concomitant]
     Route: 048
  11. MENESIT [Concomitant]
     Route: 048
  12. ROHYPNOL [Concomitant]
     Route: 048
  13. ALL OTHER THERAPEUTIC PRODUCTS [Concomitant]
     Route: 048

REACTIONS (4)
  - BLOOD CHLORIDE DECREASED [None]
  - BLOOD POTASSIUM DECREASED [None]
  - HYPONATRAEMIA [None]
  - THROMBOCYTOPENIA [None]
